FAERS Safety Report 7500326-9 (Version None)
Quarter: 2011Q2

REPORT INFORMATION
  Report Type: 
  Country: None (occurrence: None)
  Receive Date: 20110524
  Receipt Date: 20100608
  Transmission Date: 20111010
  Serious: No
  Sender: FDA-Public Use
  Company Number: US-NOVEN-ALL1-2010-02497

PATIENT

DRUGS (4)
  1. PULMICORT [Concomitant]
     Dosage: UNK, AS REQ'D
     Route: 055
     Dates: start: 20030101
  2. SINGULAIR [Concomitant]
     Dosage: UNK MG, AS REQ'D
     Route: 048
     Dates: start: 20050101
  3. DAYTRANA [Suspect]
     Dosage: 10 MG, 1X/DAY:QD
     Route: 062
     Dates: start: 20080101
  4. DAYTRANA [Suspect]
     Dosage: 15 MG, 1X/DAY:QD
     Route: 062
     Dates: start: 20100501

REACTIONS (2)
  - DRUG INEFFECTIVE [None]
  - OFF LABEL USE [None]
